FAERS Safety Report 24225130 (Version 6)
Quarter: 2024Q3

REPORT INFORMATION
  Report Type: Report from Study
  Country: ES (occurrence: ES)
  Receive Date: 20240820
  Receipt Date: 20240912
  Transmission Date: 20241016
  Serious: Yes (Hospitalization, Other)
  Sender: ABBVIE
  Company Number: ES-ABBVIE-5881121

PATIENT
  Sex: Male
  Weight: 70 kg

DRUGS (4)
  1. CARBIDOPA\LEVODOPA [Suspect]
     Active Substance: CARBIDOPA\LEVODOPA
     Indication: Parkinson^s disease
     Dosage: FREQUENCY TEXT: 16 HOURS PER DAY
     Route: 050
     Dates: start: 20180703, end: 202408
  2. CARBIDOPA\LEVODOPA [Suspect]
     Active Substance: CARBIDOPA\LEVODOPA
     Dosage: UPDATED THE PUMP DOSE,FREQUENCY TEXT: 16 HOURS PER DAY?END DATE 2024
     Route: 050
     Dates: start: 202408
  3. CARBIDOPA\LEVODOPA [Suspect]
     Active Substance: CARBIDOPA\LEVODOPA
     Dosage: FIRST ADMIN DATE 2024
     Route: 050
     Dates: start: 2024
  4. AMOXICILLIN\CLAVULANATE POTASSIUM [Concomitant]
     Active Substance: AMOXICILLIN\CLAVULANATE POTASSIUM
     Indication: Sepsis
     Route: 048
     Dates: start: 2024

REACTIONS (14)
  - Loss of consciousness [Recovered/Resolved]
  - Sepsis [Unknown]
  - Fall [Unknown]
  - Rhabdomyolysis [Recovering/Resolving]
  - Malaise [Not Recovered/Not Resolved]
  - On and off phenomenon [Unknown]
  - Wound infection [Recovering/Resolving]
  - Disorientation [Unknown]
  - Device issue [Unknown]
  - General physical health deterioration [Not Recovered/Not Resolved]
  - Apathy [Unknown]
  - Memory impairment [Not Recovered/Not Resolved]
  - Cognitive disorder [Unknown]
  - Delusional perception [Unknown]

NARRATIVE: CASE EVENT DATE: 20240101
